FAERS Safety Report 6873852-3 (Version None)
Quarter: 2010Q3

REPORT INFORMATION
  Report Type: 
  Country: None (occurrence: None)
  Receive Date: 20100723
  Receipt Date: 20090422
  Transmission Date: 20110219
  Serious: Yes (Other)
  Sender: FDA-Public Use
  Company Number: US-PFIZER INC-2009174791

PATIENT
  Sex: Female
  Weight: 77.11 kg

DRUGS (2)
  1. CHANTIX [Suspect]
     Indication: SMOKING CESSATION THERAPY
     Dates: start: 20060101
  2. PROZAC [Concomitant]
     Dosage: UNK

REACTIONS (4)
  - ABNORMAL DREAMS [None]
  - DEPRESSION [None]
  - NERVOUSNESS [None]
  - SUICIDAL IDEATION [None]
